FAERS Safety Report 17131155 (Version 4)
Quarter: 2020Q2

REPORT INFORMATION
  Report Type: Spontaneous
  Country: PT (occurrence: PT)
  Receive Date: 20191209
  Receipt Date: 20200605
  Transmission Date: 20200713
  Serious: Yes (Hospitalization, Other)
  Sender: FDA-Public Use
  Company Number: NVSC2019PT049756

PATIENT
  Age: 82 Year
  Sex: Male

DRUGS (6)
  1. DILTIAZEM. [Suspect]
     Active Substance: DILTIAZEM
     Indication: HYPERTENSION
     Dosage: 200 MILLIGRAM DAILY;
     Route: 048
  2. HYDROCHLOROTHIAZIDE,OLMESARTAN MEDOXOMIL [Suspect]
     Active Substance: HYDROCHLOROTHIAZIDE\OLMESARTAN MEDOXOMIL
     Indication: HYPERTENSION
     Dosage: UNK, 20/12.5
     Route: 048
  3. HYDROCHLOROTHIAZIDE,OLMESARTAN MEDOXOMIL [Suspect]
     Active Substance: HYDROCHLOROTHIAZIDE\OLMESARTAN MEDOXOMIL
     Dosage: UNK
     Route: 065
  4. PRAVASTATIN. [Suspect]
     Active Substance: PRAVASTATIN
     Indication: DYSLIPIDAEMIA
     Dosage: 40 MG, QD
     Route: 048
  5. PRAVASTATIN. [Suspect]
     Active Substance: PRAVASTATIN
     Dosage: UNK
     Route: 065
  6. DILTIAZEM. [Suspect]
     Active Substance: DILTIAZEM
     Indication: DYSLIPIDAEMIA
     Dosage: UNK
     Route: 065

REACTIONS (11)
  - Syncope [Unknown]
  - Diarrhoea [Recovered/Resolved]
  - Hypoalbuminaemia [Recovered/Resolved]
  - Weight decreased [Recovered/Resolved]
  - Hypomagnesaemia [Recovered/Resolved]
  - Dehydration [Recovered/Resolved]
  - Sprue-like enteropathy [Recovered/Resolved]
  - Hypokalaemia [Recovered/Resolved]
  - Fatigue [Recovered/Resolved]
  - Gastrointestinal disorder [Recovered/Resolved]
  - Acute kidney injury [Recovered/Resolved]
